FAERS Safety Report 14579243 (Version 1)
Quarter: 2018Q1

REPORT INFORMATION
  Report Type: Spontaneous
  Country: US (occurrence: US)
  Receive Date: 20180227
  Receipt Date: 20180227
  Transmission Date: 20180509
  Serious: Yes (Other)
  Sender: FDA-Public Use
  Company Number: US-OTSUKA-DJ20123332

PATIENT

DRUGS (2)
  1. NAVANE [Suspect]
     Active Substance: THIOTHIXENE
     Route: 065
  2. ABILIFY [Suspect]
     Active Substance: ARIPIPRAZOLE
     Route: 065

REACTIONS (8)
  - Generalised erythema [Unknown]
  - Weight decreased [Unknown]
  - Eye swelling [Unknown]
  - Cataract [Unknown]
  - Sleep disorder [Unknown]
  - Anuria [Unknown]
  - Palpitations [Unknown]
  - Diabetes mellitus [Not Recovered/Not Resolved]
